FAERS Safety Report 6280286-1 (Version None)
Quarter: 2009Q3

REPORT INFORMATION
  Report Type: 
  Country: None (occurrence: None)
  Receive Date: 20090723
  Receipt Date: 20090720
  Transmission Date: 20100115
  Serious: Yes (Hospitalization)
  Sender: FDA-Public Use
  Company Number: US-ASTRAZENECA-2009UW20400

PATIENT
  Age: 12 Year
  Sex: Male

DRUGS (3)
  1. SEROQUEL [Suspect]
     Route: 048
  2. SEROQUEL [Suspect]
     Route: 048
  3. TRILEPTAL [Concomitant]

REACTIONS (4)
  - ANXIETY [None]
  - MUSCLE TWITCHING [None]
  - PANIC ATTACK [None]
  - TREMOR [None]
